FAERS Safety Report 6005512-5 (Version None)
Quarter: 2008Q4

REPORT INFORMATION
  Report Type: 
  Country: None (occurrence: None)
  Receive Date: 20081215
  Receipt Date: 20081201
  Transmission Date: 20090506
  Serious: Yes (Death, Life-Threatening, Other)
  Sender: FDA-Public Use
  Company Number: 2008AL012145

PATIENT
  Age: 35 Year
  Sex: Female

DRUGS (3)
  1. CITALOPRAM HYDROBROMIDE [Suspect]
     Indication: DRUG USE FOR UNKNOWN INDICATION
     Dosage: PO
     Route: 048
  2. ANTIPSYCHOTICS [Concomitant]
  3. NON-SPECIFIED [Concomitant]

REACTIONS (7)
  - ANOXIC ENCEPHALOPATHY [None]
  - CARDIAC ARREST [None]
  - DRUG TOXICITY [None]
  - ENCEPHALOPATHY [None]
  - HYPOKALAEMIA [None]
  - SEPSIS [None]
  - STAPHYLOCOCCAL INFECTION [None]
